FAERS Safety Report 7215206-6 (Version None)
Quarter: 2011Q1

REPORT INFORMATION
  Report Type: 
  Country: None (occurrence: None)
  Receive Date: 20110107
  Receipt Date: 20101027
  Transmission Date: 20110831
  Serious: No
  Sender: FDA-Public Use
  Company Number: A0889104A

PATIENT
  Age: 71 Year
  Sex: Female

DRUGS (7)
  1. LISINOPRIL [Concomitant]
     Dosage: 10MG PER DAY
  2. ATIVAN [Concomitant]
     Dosage: 1MG PER DAY
  3. LOPID [Concomitant]
  4. METFORMIN [Concomitant]
     Dosage: 100MG TWICE PER DAY
  5. COUMADIN [Concomitant]
  6. METOPROLOL [Concomitant]
  7. LOVAZA [Suspect]
     Dosage: 1MG IN THE MORNING
     Route: 048
     Dates: start: 20100901

REACTIONS (1)
  - NAUSEA [None]
